FAERS Safety Report 9632740 (Version 2)
Quarter: 2013Q4

REPORT INFORMATION
  Report Type: Report from Study
  Country: IT (occurrence: IT)
  Receive Date: 20131018
  Receipt Date: 20131018
  Transmission Date: 20140711
  Serious: Yes (Death, Hospitalization)
  Sender: FDA-Public Use
  Company Number: IT-BRISTOL-MYERS SQUIBB COMPANY-15568595

PATIENT
  Age: 76 Year
  Sex: Female

DRUGS (4)
  1. IPILIMUMAB [Suspect]
     Indication: MALIGNANT MELANOMA
     Dosage: ROUTE-EV;?VIAL NUMBERS:247006-27009?249879-249882?221044
     Route: 042
     Dates: start: 20101221, end: 20110203
  2. DICLOFENAC [Concomitant]
     Dates: start: 20101213, end: 20110221
  3. BEZAFIBRATE [Concomitant]
     Dates: start: 2006, end: 20110221
  4. ACETYLSALICYLIC ACID [Concomitant]
     Dates: start: 20110215, end: 20110223

REACTIONS (5)
  - Septic shock [Fatal]
  - Multi-organ failure [Fatal]
  - Mucosal inflammation [Not Recovered/Not Resolved]
  - Immune thrombocytopenic purpura [Unknown]
  - Hyperadrenocorticism [Unknown]
